FAERS Safety Report 5375402-X (Version None)
Quarter: 2007Q2

REPORT INFORMATION
  Report Type: 
  Country: None (occurrence: None)
  Receive Date: 20070629
  Receipt Date: 20070619
  Transmission Date: 20071010
  Serious: Yes (Hospitalization, Other)
  Sender: FDA-Public Use
  Company Number: US-PFIZER INC-2007047944

PATIENT
  Sex: Female
  Weight: 89.2 kg

DRUGS (2)
  1. SU-011,248 [Suspect]
     Indication: LEIOMYOSARCOMA
     Route: 048
  2. DOCETAXEL [Suspect]
     Indication: LEIOMYOSARCOMA
     Route: 042

REACTIONS (2)
  - FEBRILE NEUTROPENIA [None]
  - INFECTION [None]
